FAERS Safety Report 7528474-8 (Version None)
Quarter: 2011Q2

REPORT INFORMATION
  Report Type: 
  Country: None (occurrence: None)
  Receive Date: 20110607
  Receipt Date: 20100607
  Transmission Date: 20111010
  Serious: No
  Sender: FDA-Public Use
  Company Number: US-ASTRAZENECA-2010SE27918

PATIENT
  Sex: Female

DRUGS (6)
  1. ARTHRITIS MEDICATION [Concomitant]
     Dosage: UNKNOWN
  2. ANTIHYPERTENSIVES [Concomitant]
     Dosage: UNKNOWN
  3. THYROID THERAPY [Concomitant]
     Dosage: UNKNOWN
  4. NARCOTICS [Concomitant]
     Dosage: UNKNOWN
  5. CHOLESTEROL- AND TRIGLYCERIDE REDUCERS [Concomitant]
     Dosage: UNKNOWN
  6. PRILOSEC OTC [Suspect]
     Route: 048
     Dates: start: 20100428, end: 20100606

REACTIONS (5)
  - SOMNOLENCE [None]
  - MALAISE [None]
  - HEADACHE [None]
  - INCORRECT DRUG ADMINISTRATION DURATION [None]
  - DIZZINESS [None]
